FAERS Safety Report 4925100-9 (Version None)
Quarter: 2006Q1

REPORT INFORMATION
  Report Type: 
  Country: None (occurrence: None)
  Receive Date: 20060228
  Receipt Date: 20051219
  Transmission Date: 20060701
  Serious: No
  Sender: FDA-Public Use
  Company Number: US-GLAXOSMITHKLINE-A0586277A

PATIENT
  Age: 52 Year
  Sex: Male

DRUGS (5)
  1. EPZICOM [Suspect]
     Indication: HIV INFECTION
     Dosage: 1TAB TWICE PER DAY
     Route: 048
     Dates: start: 20051207, end: 20051218
  2. REYATAZ [Concomitant]
  3. WELCHOL [Concomitant]
  4. LIPITOR [Concomitant]
  5. FLU SHOT [Concomitant]
     Route: 062

REACTIONS (6)
  - ASTHENIA [None]
  - MALAISE [None]
  - NAUSEA [None]
  - PAIN [None]
  - PYREXIA [None]
  - RASH [None]
